FAERS Safety Report 9298468 (Version 2)
Quarter: 2013Q4

REPORT INFORMATION
  Report Type: Spontaneous
  Country: US (occurrence: US)
  Receive Date: 20130520
  Receipt Date: 20131105
  Transmission Date: 20140711
  Serious: Yes (Hospitalization)
  Sender: FDA-Public Use
  Company Number: US-B.I. PHARMACEUTICALS,INC./RIDGEFIELD-2013-BI-13602BP

PATIENT
  Age: 80 Year
  Sex: Female
  Weight: 54.88 kg

DRUGS (8)
  1. PRADAXA [Suspect]
     Indication: ANTICOAGULANT THERAPY
     Dosage: 300 MG
     Dates: start: 20110713, end: 20110714
  2. PRADAXA [Suspect]
     Indication: THROMBOSIS PROPHYLAXIS
  3. HYDRALAZINE [Concomitant]
  4. HYDROCHLOROTHIAZIDE [Concomitant]
  5. AMLODIPINE [Concomitant]
  6. METOLAZONE [Concomitant]
  7. HYDROCOD/APAP [Concomitant]
  8. GLUCOSAMINE CHONDROITIN [Concomitant]

REACTIONS (6)
  - Anaemia [Unknown]
  - Coagulation test abnormal [Recovered/Resolved]
  - Contusion [Unknown]
  - Haematoma [Unknown]
  - Head injury [Unknown]
  - Fall [Unknown]
